FAERS Safety Report 22653968 (Version 1)
Quarter: 2023Q2

REPORT INFORMATION
  Report Type: Spontaneous
  Country: US (occurrence: US)
  Receive Date: 20230629
  Receipt Date: 20230629
  Transmission Date: 20230722
  Serious: No
  Sender: FDA-Public Use
  Company Number: US-SANOFI-01669699

PATIENT
  Age: 71 Year
  Sex: Female

DRUGS (2)
  1. LANTUS SOLOSTAR [Suspect]
     Active Substance: INSULIN GLARGINE
     Indication: Type 1 diabetes mellitus
     Dosage: 18 IU, QD
     Dates: start: 202305
  2. NOVOLOG [Concomitant]
     Active Substance: INSULIN ASPART
     Dosage: THREE TO FIVE TIMES A DAY AFTER EVERY MEAL

REACTIONS (3)
  - Injection site bruising [Unknown]
  - Lack of injection site rotation [Unknown]
  - Injection site mass [Unknown]

NARRATIVE: CASE EVENT DATE: 20230101
